FAERS Safety Report 21280487 (Version 1)
Quarter: 2022Q3

REPORT INFORMATION
  Report Type: Spontaneous
  Country: US (occurrence: US)
  Receive Date: 20220901
  Receipt Date: 20220901
  Transmission Date: 20221027
  Serious: Yes (Other)
  Sender: FDA-Public Use
  Company Number: US-NOVARTISPH-NVSC2022US194293

PATIENT
  Age: 4 Year
  Sex: Female
  Weight: 20.4 kg

DRUGS (3)
  1. CARBOPLATIN [Suspect]
     Active Substance: CARBOPLATIN
     Indication: Ganglioglioma
     Dosage: UNK
     Route: 065
  2. DABRAFENIB [Suspect]
     Active Substance: DABRAFENIB
     Indication: Ganglioglioma
     Dosage: 100 MG (107.1MG CALCULATED), STRENGTH: 5.25 MG/KG)
     Route: 065
  3. TRAMETINIB [Suspect]
     Active Substance: TRAMETINIB
     Indication: Ganglioglioma
     Dosage: 0.6 MG (0.65 CALCULATED), STRENGTH:  0.032 MG/KG
     Route: 065

REACTIONS (3)
  - Ganglioglioma [Unknown]
  - Malignant neoplasm progression [Unknown]
  - Dysphagia [Unknown]
